FAERS Safety Report 8612311 (Version 2)
Quarter: 2014Q1

REPORT INFORMATION
  Report Type: Spontaneous
  Country: US (occurrence: None)
  Receive Date: 20120323
  Receipt Date: 20130305
  Transmission Date: 20141002
  Serious: Yes (Other)
  Sender: FDA-Public Use
  Company Number: 163-21880-11121067

PATIENT
  Age: 71 Year
  Sex: Male

DRUGS (8)
  1. REVLIMID [Suspect]
     Indication: PLASMA CELL MYELOMA
     Dosage: 25 MG, DAILY X 21 DAYS, PO
     Route: 048
     Dates: start: 20110507, end: 20111129
  2. DEXAMETHASONE ( DEXAMETHASONE) (UNKNOWN) [Concomitant]
  3. ZOMETA ( ZOLEDRONIC ACID) (UNKNOWN) [Concomitant]
  4. FENTANYL ( FENTANYL) [Concomitant]
  5. HYDROCODONE/APAP (VICODIN) [Concomitant]
  6. COREG (CARVEDILOL) [Concomitant]
  7. SIMVASTATIN ( SIMVASTATIN) [Concomitant]
  8. CARDURA ( DOXAZOSIN MESILATE) [Concomitant]

REACTIONS (2)
  - Decreased appetite [None]
  - Weight decreased [None]
